FAERS Safety Report 7042276-0 (Version None)
Quarter: 2010Q4

REPORT INFORMATION
  Report Type: 
  Country: None (occurrence: None)
  Receive Date: 20101013
  Receipt Date: 20100205
  Transmission Date: 20110411
  Serious: No
  Sender: FDA-Public Use
  Company Number: US-ASTRAZENECA-2010SE05325

PATIENT
  Age: 87 Year
  Sex: Male
  Weight: 63.5 kg

DRUGS (8)
  1. SYMBICORT [Suspect]
     Indication: CHRONIC OBSTRUCTIVE PULMONARY DISEASE
     Dosage: 320
     Route: 055
     Dates: start: 20100125, end: 20100130
  2. PEPCID [Concomitant]
  3. SINGULAIR [Concomitant]
  4. SPIRIVA [Concomitant]
  5. BP MED [Concomitant]
  6. LEVOTHYROXINE [Concomitant]
  7. BENADRYL [Concomitant]
  8. MUCOMYST [Concomitant]

REACTIONS (2)
  - COUGH [None]
  - HAEMOPTYSIS [None]
